FAERS Safety Report 8232737-0 (Version None)
Quarter: 2012Q1

REPORT INFORMATION
  Report Type: 
  Country: None (occurrence: None)
  Receive Date: 20120323
  Receipt Date: 20120321
  Transmission Date: 20120608
  Serious: Yes (Other)
  Sender: FDA-Public Use
  Company Number: IL-ELI_LILLY_AND_COMPANY-IL201203000814

PATIENT
  Sex: Female
  Weight: 106 kg

DRUGS (11)
  1. BYETTA [Suspect]
     Dosage: 5 UG, BID
     Route: 058
     Dates: start: 20120213, end: 20120218
  2. LIPITOR                            /01326102/ [Concomitant]
  3. RAMIPRIL [Concomitant]
  4. BYETTA [Suspect]
     Indication: DIABETES MELLITUS
     Dosage: 5 UG, QD
     Route: 058
     Dates: start: 20120201, end: 20120212
  5. CARDILOC [Concomitant]
  6. LYRICA [Concomitant]
  7. PLAVIX [Concomitant]
  8. AMARYL [Concomitant]
  9. OMEPRADEX [Concomitant]
  10. GLUCOPHAGE [Concomitant]
  11. CARTIA                                  /ISR/ [Concomitant]

REACTIONS (5)
  - DIZZINESS [None]
  - WEIGHT DECREASED [None]
  - NAUSEA [None]
  - DYSPNOEA [None]
  - OROPHARYNGEAL SWELLING [None]
